FAERS Safety Report 4740061-3 (Version None)
Quarter: 2005Q3

REPORT INFORMATION
  Report Type: 
  Country: None (occurrence: None)
  Receive Date: 20050810
  Receipt Date: 20040220
  Transmission Date: 20060218
  Serious: No
  Sender: FDA-Public Use
  Company Number: US-GLAXOSMITHKLINE-A0503732A

PATIENT
  Age: 29 Year
  Sex: Male
  Weight: 97.3 kg

DRUGS (2)
  1. PAXIL [Suspect]
     Indication: ANXIETY
     Dosage: 20MG PER DAY
     Route: 048
     Dates: start: 20000101, end: 20020101
  2. PREVACID [Concomitant]
     Route: 048

REACTIONS (18)
  - ABDOMINAL DISCOMFORT [None]
  - AGITATION [None]
  - ANXIETY [None]
  - ASTHENIA [None]
  - DIARRHOEA [None]
  - DISTURBANCE IN ATTENTION [None]
  - DIZZINESS [None]
  - DRUG WITHDRAWAL SYNDROME [None]
  - FATIGUE [None]
  - HYPERHIDROSIS [None]
  - INFLUENZA [None]
  - LETHARGY [None]
  - MEMORY IMPAIRMENT [None]
  - NAUSEA [None]
  - NERVOUSNESS [None]
  - PARAESTHESIA [None]
  - VERTIGO [None]
  - VOMITING [None]
